FAERS Safety Report 5987691-9 (Version None)
Quarter: 2008Q4

REPORT INFORMATION
  Report Type: 
  Country: None (occurrence: None)
  Receive Date: 20081209
  Receipt Date: 20081202
  Transmission Date: 20090506
  Serious: Yes (Hospitalization)
  Sender: FDA-Public Use
  Company Number: US-B.I. PHARMACEUTICALS,INC./RIDGEFIELD-2008-BP-18018BP

PATIENT
  Age: 91 Year
  Sex: Female

DRUGS (8)
  1. DULCOLAX [Suspect]
     Indication: CONSTIPATION
     Route: 048
     Dates: start: 20081001
  2. ATENOLOL [Concomitant]
     Indication: BLOOD PRESSURE INCREASED
  3. SYNTHROID [Concomitant]
     Indication: HYPOTHYROIDISM
  4. LIPITOR [Concomitant]
     Indication: BLOOD CHOLESTEROL INCREASED
  5. GLIPIZIDE [Concomitant]
     Indication: TYPE 2 DIABETES MELLITUS
  6. HYDROCHLOROTHIAZIDE [Concomitant]
     Indication: BLOOD PRESSURE INCREASED
  7. LISINOPRIL [Concomitant]
  8. AMLODIPINE [Concomitant]

REACTIONS (3)
  - DRUG INEFFECTIVE [None]
  - ENTERITIS INFECTIOUS [None]
  - FAECALOMA [None]
